FAERS Safety Report 23279351 (Version 1)
Quarter: 2023Q4

REPORT INFORMATION
  Report Type: Spontaneous
  Country: CN (occurrence: CN)
  Receive Date: 20231209
  Receipt Date: 20231209
  Transmission Date: 20240110
  Serious: Yes (Other)
  Sender: FDA-Public Use
  Company Number: CN-SHANGHAI JUNSHI BIOSCIENCES CO., LTD.-CN2023008773

PATIENT

DRUGS (7)
  1. TORIPALIMAB [Suspect]
     Active Substance: TORIPALIMAB
     Indication: Adenocarcinoma of colon
     Dosage: 160 MG (D1)
     Route: 041
     Dates: start: 20231010, end: 20231010
  2. CAPECITABINE [Suspect]
     Active Substance: CAPECITABINE
     Indication: Adenocarcinoma of colon
     Dosage: 1 G, D1-D9, BID
     Route: 048
     Dates: start: 20231010, end: 20231010
  3. BEVACIZUMAB [Suspect]
     Active Substance: BEVACIZUMAB
     Indication: Adenocarcinoma of colon
     Dosage: 0.3 G (D1)
     Route: 041
     Dates: start: 20231010, end: 20231010
  4. OXALIPLATIN [Suspect]
     Active Substance: OXALIPLATIN
     Indication: Adenocarcinoma of colon
     Dosage: 120 MG (D1)
     Route: 041
     Dates: start: 20231010, end: 20231010
  5. SODIUM CHLORIDE [Concomitant]
     Active Substance: SODIUM CHLORIDE
     Indication: Medication dilution
     Dosage: 200 ML (D1)
     Route: 041
     Dates: start: 20231010, end: 20231010
  6. SODIUM CHLORIDE [Concomitant]
     Active Substance: SODIUM CHLORIDE
     Indication: Medication dilution
     Dosage: 100 ML (D1)
     Route: 041
     Dates: start: 20231010, end: 20231010
  7. DEXTROSE [Concomitant]
     Active Substance: DEXTROSE\DEXTROSE MONOHYDRATE
     Indication: Medication dilution
     Dosage: 250 ML (D1)
     Route: 041
     Dates: start: 20231010, end: 20231010

REACTIONS (3)
  - White blood cell count decreased [Recovering/Resolving]
  - Neutrophil count decreased [Recovering/Resolving]
  - Off label use [Unknown]

NARRATIVE: CASE EVENT DATE: 20231010
